FAERS Safety Report 6427910-8 (Version None)
Quarter: 2009Q4

REPORT INFORMATION
  Report Type: 
  Country: None (occurrence: None)
  Receive Date: 20091102
  Receipt Date: 20091020
  Transmission Date: 20100525
  Serious: Yes (Hospitalization)
  Sender: FDA-Public Use
  Company Number: A-CH2009-24362

PATIENT
  Age: 82 Year
  Sex: Male
  Weight: 84 kg

DRUGS (9)
  1. TRACLEER [Suspect]
     Indication: PULMONARY ARTERIAL HYPERTENSION
     Dosage: 125 MG, BID, ORAL; 62.5 MG, BID, ORAL
     Route: 048
  2. ATARAX (ALPRAZOLAM) [Concomitant]
  3. PAROXETINE HYDROCHLORIDE [Concomitant]
  4. NEXIUM [Concomitant]
  5. LASIX [Concomitant]
  6. PLAVIX [Concomitant]
  7. RISPERDAL [Concomitant]
  8. OXAZEPAM [Concomitant]
  9. PREVISCAN (FLUINDONE) [Concomitant]

REACTIONS (2)
  - DRUG DOSE OMISSION [None]
  - ERYSIPELAS [None]
